APPROVED DRUG PRODUCT: FENOFIBRIC ACID
Active Ingredient: CHOLINE FENOFIBRATE
Strength: EQ 135MG FENOFIBRIC ACID
Dosage Form/Route: CAPSULE, DELAYED RELEASE;ORAL
Application: A212598 | Product #002 | TE Code: AB
Applicant: AUROBINDO PHARMA LTD
Approved: Jul 25, 2019 | RLD: No | RS: Yes | Type: RX